FAERS Safety Report 7655929-8 (Version None)
Quarter: 2011Q3

REPORT INFORMATION
  Report Type: 
  Country: None (occurrence: None)
  Receive Date: 20110804
  Receipt Date: 20110801
  Transmission Date: 20111222
  Serious: Yes (Death, Other)
  Sender: FDA-Public Use
  Company Number: JP-SANOFI-AVENTIS-2011SA048827

PATIENT
  Age: 74 Year
  Sex: Male

DRUGS (7)
  1. OXALIPLATIN [Suspect]
     Dosage: ON DAY 1
     Route: 065
  2. FLUOROURACIL [Suspect]
     Dosage: BOLUS INJECTION
     Route: 065
  3. DEXAMETHASONE [Concomitant]
  4. OXALIPLATIN [Suspect]
     Route: 065
  5. LEUCOVORIN CALCIUM [Concomitant]
     Dosage: 2 HOUR INFUSION
     Route: 042
  6. FLUOROURACIL [Suspect]
     Route: 065
  7. FLUOROURACIL [Suspect]
     Route: 065

REACTIONS (14)
  - HYPOXIA [None]
  - NEUTROPENIA [None]
  - INTERSTITIAL LUNG DISEASE [None]
  - DYSPNOEA [None]
  - NEUROPATHY PERIPHERAL [None]
  - THROMBOCYTOPENIA [None]
  - COUGH [None]
  - RED BLOOD CELL SEDIMENTATION RATE INCREASED [None]
  - STOMATITIS [None]
  - C-REACTIVE PROTEIN INCREASED [None]
  - RESPIRATORY DISTRESS [None]
  - RESPIRATORY FAILURE [None]
  - PYREXIA [None]
  - CELL MARKER INCREASED [None]
